FAERS Safety Report 8992000 (Version 1)
Quarter: 2012Q4

REPORT INFORMATION
  Report Type: 
  Country: US (occurrence: US)
  Receive Date: 20121231
  Receipt Date: 20121231
  Transmission Date: 20130627
  Serious: Yes (Other)
  Sender: FDA-Public Use
  Company Number: CHPA2012US025491

PATIENT

DRUGS (1)
  1. EXCEDRIN UNKNOWN [Suspect]
     Dosage: Unk, Unk
     Route: 065

REACTIONS (1)
  - Nasal disorder [Unknown]
